FAERS Safety Report 23260289 (Version 2)
Quarter: 2024Q1

REPORT INFORMATION
  Report Type: Spontaneous
  Country: NL (occurrence: NL)
  Receive Date: 20231204
  Receipt Date: 20240131
  Transmission Date: 20240410
  Serious: Yes (Death, Other)
  Sender: FDA-Public Use
  Company Number: None

PATIENT
  Age: 47 Year
  Sex: Male
  Weight: 122 kg

DRUGS (6)
  1. SIMVASTATIN [Suspect]
     Active Substance: SIMVASTATIN
     Indication: Type 2 diabetes mellitus
     Dosage: 40 MG, QD
     Dates: start: 20210101
  2. CLOPIDOGREL BISULFATE [Suspect]
     Active Substance: CLOPIDOGREL BISULFATE
     Indication: Prophylaxis
     Dosage: 75 MG, QD
     Dates: start: 20210204
  3. GLICLAZIDE [Suspect]
     Active Substance: GLICLAZIDE
     Indication: Type 2 diabetes mellitus
     Dosage: 30 MG, QD
     Dates: start: 20210126
  4. OMEPRAZOLE [Suspect]
     Active Substance: OMEPRAZOLE
     Indication: Abdominal discomfort
     Dosage: 1 DF, QD (1X PER DAY 1)
     Dates: start: 20160101
  5. METFORMIN HYDROCHLORIDE [Suspect]
     Active Substance: METFORMIN HYDROCHLORIDE
     Indication: Type 2 diabetes mellitus
     Dosage: 1000 MG, TID
     Dates: start: 20210607
  6. LIRAGLUTIDE [Suspect]
     Active Substance: LIRAGLUTIDE
     Indication: Obesity
     Dosage: 1 DF, QW
     Dates: start: 20221013

REACTIONS (1)
  - Sudden death [Fatal]

NARRATIVE: CASE EVENT DATE: 20231025
